FAERS Safety Report 6322099-8 (Version None)
Quarter: 2009Q3

REPORT INFORMATION
  Report Type: 
  Country: None (occurrence: None)
  Receive Date: 20090824
  Receipt Date: 20090814
  Transmission Date: 20100115
  Serious: Yes (Other)
  Sender: FDA-Public Use
  Company Number: SE-JNJFOC-20090805072

PATIENT
  Age: 70 Year
  Sex: Female

DRUGS (5)
  1. REMICADE [Suspect]
     Indication: ARTHRITIS
  2. ENALAPRIL MALEATE [Concomitant]
  3. KALCIPOS-D [Concomitant]
  4. FOLACIN [Concomitant]
  5. SELOKEN ZOC [Concomitant]

REACTIONS (1)
  - MALIGNANT MELANOMA [None]
